FAERS Safety Report 20560290 (Version 1)
Quarter: 2022Q1

REPORT INFORMATION
  Report Type: Report from Study
  Country: FR (occurrence: FR)
  Receive Date: 20220307
  Receipt Date: 20220307
  Transmission Date: 20220424
  Serious: Yes (Hospitalization, Other)
  Sender: FDA-Public Use
  Company Number: FR-SERVIER-S21001553

PATIENT

DRUGS (4)
  1. PEGASPARGASE [Suspect]
     Active Substance: PEGASPARGASE
     Indication: Acute lymphocytic leukaemia
     Dosage: 1650 IU, QD ON D12
     Route: 042
     Dates: start: 20201110, end: 20201110
  2. TN UNSPECIFIED [Concomitant]
     Indication: Acute lymphocytic leukaemia
     Dosage: 4 MG ON D8 TO D28
     Route: 048
     Dates: start: 20201106, end: 20201126
  3. TN UNSPECIFIED [Concomitant]
     Indication: Acute lymphocytic leukaemia
     Dosage: 1 MG ON D8, D15, D22, AND D29
     Route: 042
     Dates: start: 20201106, end: 20201127
  4. TN UNSPECIFIED [Concomitant]
     Indication: Acute lymphocytic leukaemia
     Dosage: 12 MG ON D2, D9, D13, AND D18
     Route: 037
     Dates: start: 20201101, end: 20201116

REACTIONS (3)
  - Hypertriglyceridaemia [Recovered/Resolved]
  - Asthenia [Recovered/Resolved]
  - General physical health deterioration [Recovered/Resolved]

NARRATIVE: CASE EVENT DATE: 20201127
